FAERS Safety Report 4640635-4 (Version None)
Quarter: 2005Q2

REPORT INFORMATION
  Report Type: 
  Country: None (occurrence: None)
  Receive Date: 20050419
  Receipt Date: 20050406
  Transmission Date: 20051028
  Serious: Yes (Death, Hospitalization, Other)
  Sender: FDA-Public Use
  Company Number: 2005055604

PATIENT
  Age: 65 Year
  Sex: Female
  Weight: 82 kg

DRUGS (4)
  1. LITHIUM CARBONATE [Suspect]
     Indication: ILL-DEFINED DISORDER
  2. CLOMIPRAMINE HCL [Suspect]
     Indication: DEPRESSION
  3. FLUVOXAMINE MALEATE [Suspect]
     Indication: DEPRESSION
  4. LEVOMEPROMAZINE (LEVOMEPROMAZINE) [Suspect]
     Indication: PSYCHOTIC DISORDER

REACTIONS (5)
  - CONJUNCTIVAL HYPERAEMIA [None]
  - CONTUSION [None]
  - EXCORIATION [None]
  - PETECHIAE [None]
  - SEROTONIN SYNDROME [None]
